FAERS Safety Report 6844226-6 (Version None)
Quarter: 2010Q3

REPORT INFORMATION
  Report Type: 
  Country: None (occurrence: None)
  Receive Date: 20100715
  Receipt Date: 20100706
  Transmission Date: 20110219
  Serious: Yes (Other)
  Sender: FDA-Public Use
  Company Number: B0665323A

PATIENT
  Age: 36 Year
  Sex: Male

DRUGS (1)
  1. FLIXONASE [Suspect]
     Dosage: 400MG PER DAY
     Route: 065
     Dates: start: 20100430, end: 20100509

REACTIONS (1)
  - ANGINA PECTORIS [None]
